FAERS Safety Report 4453658-5 (Version None)
Quarter: 2004Q3

REPORT INFORMATION
  Report Type: 
  Country: None (occurrence: None)
  Receive Date: 20040920
  Receipt Date: 20040915
  Transmission Date: 20050211
  Serious: Yes (Other)
  Sender: FDA-Public Use
  Company Number: AT-BRISTOL-MYERS SQUIBB COMPANY-12703245

PATIENT
  Age: 47 Year
  Sex: Male

DRUGS (4)
  1. PRAVASTATIN SODIUM [Suspect]
     Indication: HYPERLIPIDAEMIA
     Dates: start: 20000101, end: 20040101
  2. CITALOPRAM [Concomitant]
     Indication: DEPRESSION
  3. MELPERONE HCL [Concomitant]
     Indication: DEPRESSION
  4. ACETYLSALICYLIC ACID [Concomitant]

REACTIONS (1)
  - OEDEMA GENITAL [None]
